FAERS Safety Report 4731536-1 (Version None)
Quarter: 2005Q3

REPORT INFORMATION
  Report Type: 
  Country: None (occurrence: None)
  Receive Date: 20050721
  Receipt Date: 20050512
  Transmission Date: 20060218
  Serious: Yes (Other)
  Sender: FDA-Public Use
  Company Number: 2005047141

PATIENT
  Age: 40 Year
  Sex: Female
  Weight: 65.7716 kg

DRUGS (3)
  1. RELPAX [Suspect]
     Indication: MIGRAINE
     Dosage: 40 MG (40 MG,1 IN 1 AS NECESSARY), ORAL
     Route: 048
  2. SYNTHROID [Concomitant]
  3. IMITREX [Concomitant]

REACTIONS (2)
  - DRUG INTOLERANCE [None]
  - NAUSEA [None]
